FAERS Safety Report 7133859-8 (Version None)
Quarter: 2010Q4

REPORT INFORMATION
  Report Type: 
  Country: None (occurrence: None)
  Receive Date: 20101203
  Receipt Date: 20101123
  Transmission Date: 20110411
  Serious: Yes (Other)
  Sender: FDA-Public Use
  Company Number: US-RB-015790-10

PATIENT
  Age: 55 Year
  Sex: Female

DRUGS (3)
  1. MUCINEX [Suspect]
     Dosage: TAKEN FOR A LITTLE OVER A WEEK
     Route: 048
  2. MUCINEX [Suspect]
     Route: 048
  3. MUCINEX DM [Suspect]
     Route: 048

REACTIONS (3)
  - BLOOD PRESSURE INCREASED [None]
  - FATIGUE [None]
  - INCORRECT DRUG ADMINISTRATION DURATION [None]
